FAERS Safety Report 8263566-X (Version None)
Quarter: 2012Q2

REPORT INFORMATION
  Report Type: 
  Country: None (occurrence: None)
  Receive Date: 20120405
  Receipt Date: 20120328
  Transmission Date: 20120825
  Serious: Yes (Other)
  Sender: FDA-Public Use
  Company Number: CHPA2012BR005878

PATIENT
  Age: 69 Year
  Sex: Female

DRUGS (1)
  1. ACETAMINOPHEN, ASPIRIN AND CAFFEINE [Suspect]
     Indication: HEADACHE
     Dosage: HALF TO ONE TABLET A DAY, PRN
     Route: 048

REACTIONS (5)
  - DYSPEPSIA [None]
  - GASTRITIS [None]
  - THERAPEUTIC RESPONSE DECREASED [None]
  - UNDERDOSE [None]
  - CEREBROVASCULAR ACCIDENT [None]
